FAERS Safety Report 5958184-X (Version None)
Quarter: 2008Q4

REPORT INFORMATION
  Report Type: 
  Country: None (occurrence: None)
  Receive Date: 20081119
  Receipt Date: 20081114
  Transmission Date: 20090506
  Serious: Yes (Hospitalization, Other)
  Sender: FDA-Public Use
  Company Number: FR-GENENTECH-270976

PATIENT
  Age: 72 Year
  Sex: Male

DRUGS (3)
  1. RAPTIVA [Suspect]
     Indication: PSORIASIS
     Dosage: UNK
     Dates: start: 20080601
  2. CHELATING AGENTS [Concomitant]
     Indication: HAEMOCHROMATOSIS
     Dosage: UNK
  3. LASIX [Concomitant]
     Indication: HYPERTENSION
     Dosage: UNK

REACTIONS (2)
  - ASCITES [None]
  - HEPATIC CIRRHOSIS [None]
